FAERS Safety Report 19940664 (Version 1)
Quarter: 2021Q4

REPORT INFORMATION
  Report Type: Spontaneous
  Country: US (occurrence: US)
  Receive Date: 20211011
  Receipt Date: 20211011
  Transmission Date: 20220303
  Serious: Yes (Hospitalization, Other)
  Sender: FDA-Public Use
  Company Number: US-ALVOGEN-2021-ALVOGEN-117623

PATIENT
  Age: 52 Year
  Sex: Female

DRUGS (2)
  1. FENTANYL [Suspect]
     Active Substance: FENTANYL
     Indication: Pain
     Route: 037
  2. BUPIVACAINE [Suspect]
     Active Substance: BUPIVACAINE
     Indication: Pain
     Dosage: INTRATHECAL OPIOID PUMP (MEDTRONIC)
     Route: 037

REACTIONS (2)
  - Arachnoid web [Recovered/Resolved]
  - Nervous system disorder [Recovered/Resolved]
